FAERS Safety Report 13287050 (Version 1)
Quarter: 2017Q1

REPORT INFORMATION
  Report Type: Report from Study
  Country: US (occurrence: US)
  Receive Date: 20170302
  Receipt Date: 20170302
  Transmission Date: 20170428
  Serious: Yes (Hospitalization)
  Sender: FDA-Public Use
  Company Number: US-JNJFOC-20170301251

PATIENT
  Sex: Male

DRUGS (2)
  1. ULTRAM ER [Suspect]
     Active Substance: TRAMADOL HYDROCHLORIDE
     Indication: ATRIAL FIBRILLATION
     Route: 065
  2. ULTRAM ER [Suspect]
     Active Substance: TRAMADOL HYDROCHLORIDE
     Indication: ATRIAL FIBRILLATION
     Route: 065

REACTIONS (5)
  - Cerebral haemorrhage [Recovered/Resolved]
  - Product use issue [Unknown]
  - Off label use [Unknown]
  - Fall [Recovered/Resolved]
  - Dizziness [Recovered/Resolved]
